FAERS Safety Report 11859203 (Version 1)
Quarter: 2015Q4

REPORT INFORMATION
  Report Type: Spontaneous
  Country: US (occurrence: US)
  Receive Date: 20151222
  Receipt Date: 20151222
  Transmission Date: 20160305
  Serious: Yes (Death)
  Sender: FDA-Public Use
  Company Number: US-CELGENE-USA-2015121857

PATIENT

DRUGS (2)
  1. ENTINOSTAT [Suspect]
     Active Substance: ENTINOSTAT
     Indication: NEOPLASM MALIGNANT
     Route: 058
  2. VIDAZA [Suspect]
     Active Substance: AZACITIDINE
     Indication: NEOPLASM MALIGNANT
     Dosage: 50 MILLIGRAM/SQ. METER
     Route: 058

REACTIONS (1)
  - Ischaemia [Fatal]
